FAERS Safety Report 21330988 (Version 1)
Quarter: 2022Q3

REPORT INFORMATION
  Report Type: Spontaneous
  Country: SE (occurrence: SE)
  Receive Date: 20220914
  Receipt Date: 20220914
  Transmission Date: 20221027
  Serious: Yes (Other)
  Sender: FDA-Public Use
  Company Number: None

PATIENT
  Age: 21 Year
  Sex: Female
  Weight: 98 kg

DRUGS (3)
  1. CONCERTA [Suspect]
     Active Substance: METHYLPHENIDATE HYDROCHLORIDE
     Indication: Attention deficit hyperactivity disorder
     Dosage: CONCERTA 36 MG DEPOT TABLET
     Route: 048
     Dates: start: 20180901, end: 20220518
  2. MELATONIN [Concomitant]
     Active Substance: MELATONIN
     Dosage: 5 MG 1-2 TILL NATTEN
     Route: 048
     Dates: start: 20170524
  3. DESOGESTREL [Concomitant]
     Active Substance: DESOGESTREL
     Dosage: 75 MIKROGRAM 1X1
     Route: 048
     Dates: start: 20170525, end: 20220825

REACTIONS (1)
  - Increased tendency to bruise [Recovered/Resolved]

NARRATIVE: CASE EVENT DATE: 20220501
